FAERS Safety Report 17195735 (Version 1)
Quarter: 2019Q4

REPORT INFORMATION
  Report Type: Spontaneous
  Country: US (occurrence: US)
  Receive Date: 20191202
  Receipt Date: 20191202
  Transmission Date: 20200122
  Serious: Yes (Disabling, Other)
  Sender: FDA-Public Use
  Company Number: None

PATIENT
  Age: 50 Year
  Sex: Male
  Weight: 127.01 kg

DRUGS (11)
  1. MULTI VITAMIN [Concomitant]
     Active Substance: VITAMINS
  2. LOVASA [Concomitant]
  3. HUMIRA [Suspect]
     Active Substance: ADALIMUMAB
     Indication: PSORIASIS
     Dosage: ?          QUANTITY:40 MG MILLIGRAM(S);OTHER FREQUENCY:2X PER/MONTH;?
     Route: 058
     Dates: start: 20030301, end: 20191011
  4. TRILIPIX [Concomitant]
     Active Substance: FENOFIBRIC ACID
  5. EFFEXOR XR [Concomitant]
     Active Substance: VENLAFAXINE HYDROCHLORIDE
  6. ALPRAZOLAM. [Concomitant]
     Active Substance: ALPRAZOLAM
  7. AMLODIPINE [Concomitant]
     Active Substance: AMLODIPINE BESYLATE
  8. ALEVE [Concomitant]
     Active Substance: NAPROXEN SODIUM
  9. BACLOFEN. [Concomitant]
     Active Substance: BACLOFEN
  10. WELLBUTRIN XL [Concomitant]
     Active Substance: BUPROPION HYDROCHLORIDE
  11. COZAAR [Concomitant]
     Active Substance: LOSARTAN POTASSIUM

REACTIONS (2)
  - Demyelination [None]
  - Hemiparesis [None]

NARRATIVE: CASE EVENT DATE: 20191019
